FAERS Safety Report 6804664-4 (Version None)
Quarter: 2010Q2

REPORT INFORMATION
  Report Type: 
  Country: None (occurrence: None)
  Receive Date: 20100628
  Receipt Date: 20070906
  Transmission Date: 20101027
  Serious: Yes (Other)
  Sender: FDA-Public Use
  Company Number: US-PFIZER INC-2007033048

PATIENT
  Sex: Female
  Weight: 101 kg

DRUGS (4)
  1. SUTENT [Suspect]
     Indication: METASTATIC RENAL CELL CARCINOMA
     Route: 048
     Dates: start: 20070205, end: 20070412
  2. LISINOPRIL [Concomitant]
     Dates: start: 20070320, end: 20070430
  3. SYNTHROID [Concomitant]
     Dates: start: 20070223
  4. NEURONTIN [Concomitant]
     Dates: start: 20060526

REACTIONS (1)
  - HAEMORRHAGE INTRACRANIAL [None]
